FAERS Safety Report 20582939 (Version 1)
Quarter: 2022Q1

REPORT INFORMATION
  Report Type: Spontaneous
  Country: US (occurrence: US)
  Receive Date: 20220311
  Receipt Date: 20220311
  Transmission Date: 20220423
  Serious: No
  Sender: FDA-Public Use
  Company Number: US-009507513-2202USA003801

PATIENT
  Sex: Male

DRUGS (1)
  1. STROMECTOL [Suspect]
     Active Substance: IVERMECTIN
     Indication: SARS-CoV-2 test positive
     Dosage: UNK
     Route: 048
     Dates: end: 20220209

REACTIONS (3)
  - Oropharyngeal pain [Unknown]
  - Product use in unapproved indication [Unknown]
  - Product prescribing issue [Unknown]
